FAERS Safety Report 5264444-0 (Version None)
Quarter: 2007Q1

REPORT INFORMATION
  Report Type: 
  Country: None (occurrence: None)
  Receive Date: 20070309
  Receipt Date: 20070305
  Transmission Date: 20070707
  Serious: Yes (Hospitalization, Other)
  Sender: FDA-Public Use
  Company Number: FABR-11909

PATIENT
  Age: 63 Year
  Sex: Female

DRUGS (10)
  1. FABRAZYME [Suspect]
     Indication: FABRY'S DISEASE
     Dosage: 70 MG Q2WKS IV
     Route: 042
     Dates: start: 20031002
  2. ASPIRIN [Concomitant]
  3. LIPITOR [Concomitant]
  4. COLACE [Concomitant]
  5. LASIX [Concomitant]
  6. COZAAR [Concomitant]
  7. POTASSIUM CHLORIDE ER [Concomitant]
  8. SENOKOT [Concomitant]
  9. VERAPAMIL [Concomitant]
  10. KEFLEX [Concomitant]

REACTIONS (13)
  - ANXIETY [None]
  - ARTHRALGIA [None]
  - BRADYARRHYTHMIA [None]
  - CHEST PAIN [None]
  - CHILLS [None]
  - DIZZINESS [None]
  - DYSPNOEA [None]
  - HEADACHE [None]
  - HYPERLIPIDAEMIA [None]
  - INFUSION RELATED REACTION [None]
  - MYALGIA [None]
  - NAUSEA [None]
  - PALPITATIONS [None]
